FAERS Safety Report 4532438-6 (Version None)
Quarter: 2004Q4

REPORT INFORMATION
  Report Type: 
  Country: None (occurrence: None)
  Receive Date: 20041217
  Receipt Date: 20041203
  Transmission Date: 20050328
  Serious: Yes (Other)
  Sender: FDA-Public Use
  Company Number: 2004-00891

PATIENT

DRUGS (2)
  1. VELCADE [Suspect]
     Dosage: INTRAVENOUS
     Route: 042
  2. THALIDOMIDE (THALIDOMIDE) [Suspect]

REACTIONS (1)
  - EMBOLISM [None]
